FAERS Safety Report 6915440-6 (Version None)
Quarter: 2010Q3

REPORT INFORMATION
  Report Type: 
  Country: None (occurrence: None)
  Receive Date: 20100809
  Receipt Date: 20100521
  Transmission Date: 20110219
  Serious: No
  Sender: FDA-Public Use
  Company Number: US-ABBOTT-10P-163-0647330-00

PATIENT
  Sex: Male
  Weight: 97.61 kg

DRUGS (3)
  1. DEPAKOTE ER [Suspect]
     Indication: BIPOLAR DISORDER
     Route: 048
  2. SYNTHROID [Suspect]
     Indication: HYPOTHYROIDISM
     Route: 048
  3. SEROQUEL [Concomitant]
     Indication: BIPOLAR DISORDER

REACTIONS (5)
  - ALOPECIA [None]
  - DYSURIA [None]
  - PRURITUS [None]
  - SCAB [None]
  - WEIGHT INCREASED [None]
